FAERS Safety Report 5489504-0 (Version None)
Quarter: 2007Q4

REPORT INFORMATION
  Report Type: 
  Country: None (occurrence: None)
  Receive Date: 20071016
  Receipt Date: 20071016
  Transmission Date: 20080405
  Serious: No
  Sender: FDA-Public Use
  Company Number: None

PATIENT
  Age: 72 Year
  Sex: Male

DRUGS (1)
  1. LEVOFLOXACIN [Suspect]
     Indication: UPPER RESPIRATORY TRACT INFECTION
     Dosage: 500MG EVERY DAY PO
     Route: 048
     Dates: start: 20071010, end: 20071010

REACTIONS (3)
  - PRURITUS [None]
  - RASH [None]
  - URTICARIA [None]
